FAERS Safety Report 6666328-X (Version None)
Quarter: 2010Q1

REPORT INFORMATION
  Report Type: 
  Country: None (occurrence: None)
  Receive Date: 20100331
  Receipt Date: 20100329
  Transmission Date: 20100710
  Serious: Yes (Life-Threatening, Disabling)
  Sender: FDA-Public Use
  Company Number: SP02770

PATIENT
  Age: 50 Year
  Sex: Male
  Weight: 105.2345 kg

DRUGS (1)
  1. MOVIPREP [Suspect]
     Indication: BOWEL PREPARATION
     Dosage: ORAL
     Route: 048
     Dates: start: 20100121, end: 20100121

REACTIONS (3)
  - DYSPNOEA [None]
  - SWOLLEN TONGUE [None]
  - URTICARIA [None]
